FAERS Safety Report 6605149-0 (Version None)
Quarter: 2010Q1

REPORT INFORMATION
  Report Type: 
  Country: None (occurrence: None)
  Receive Date: 20100226
  Receipt Date: 20100218
  Transmission Date: 20100710
  Serious: Yes (Hospitalization)
  Sender: FDA-Public Use
  Company Number: US-ELI_LILLY_AND_COMPANY-US201002005160

PATIENT
  Sex: Female
  Weight: 90.703 kg

DRUGS (13)
  1. BYETTA [Suspect]
     Indication: TYPE 2 DIABETES MELLITUS
     Dosage: 5 UG, 2/D
     Dates: start: 20080101
  2. BYETTA [Suspect]
     Dosage: 10 UG, 2/D
     Route: 058
  3. METOPROLOL TARTRATE [Concomitant]
     Dosage: 100 MG, 2/D
  4. DEPOLAN [Concomitant]
  5. EFFEXOR [Concomitant]
     Dosage: 75 MG, 3/D
     Dates: start: 20020101
  6. XANAX [Concomitant]
     Dosage: 0.25 MG, EACH EVENING
  7. SPIRONOLACTONE [Concomitant]
     Dosage: UNK, EACH MORNING
  8. VITAMIN B-12 [Concomitant]
     Dosage: UNK, MONTHLY (1/M)
  9. VITAMIN C [Concomitant]
  10. CO-Q10 [Concomitant]
  11. GLUCOSAMINE [Concomitant]
  12. NORVASC [Concomitant]
  13. CRESTOR [Concomitant]
     Indication: BLOOD CHOLESTEROL

REACTIONS (18)
  - ASTHENIA [None]
  - BLOOD GLUCOSE DECREASED [None]
  - BLOOD GLUCOSE INCREASED [None]
  - DIZZINESS [None]
  - DYSPNOEA [None]
  - FEELING ABNORMAL [None]
  - HEART RATE ABNORMAL [None]
  - HEART RATE INCREASED [None]
  - MOBILITY DECREASED [None]
  - MOTION SICKNESS [None]
  - NAUSEA [None]
  - NERVOUSNESS [None]
  - RASH MACULAR [None]
  - SKIN DISCOLOURATION [None]
  - STAPHYLOCOCCAL INFECTION [None]
  - THYROID DISORDER [None]
  - VITAMIN D DECREASED [None]
  - WOUND DRAINAGE [None]
